FAERS Safety Report 6772281-0 (Version None)
Quarter: 2010Q2

REPORT INFORMATION
  Report Type: 
  Country: None (occurrence: None)
  Receive Date: 20100616
  Receipt Date: 20090706
  Transmission Date: 20101027
  Serious: No
  Sender: FDA-Public Use
  Company Number: US-ASTRAZENECA-2009UW18713

PATIENT
  Sex: Female

DRUGS (9)
  1. PULMICORT FLEXHALER [Suspect]
     Dosage: 1 PUFF TWO TIMES A DAY
     Route: 055
  2. PULMICORT FLEXHALER [Suspect]
     Dosage: 2 PUFF TWO TIMES A DAY
     Route: 055
     Dates: end: 20090701
  3. EFFEXOR [Concomitant]
     Indication: ANTIDEPRESSANT THERAPY
  4. LISINOPRIL [Concomitant]
  5. JANUVIA [Concomitant]
     Indication: DIABETES MELLITUS
  6. TOPROL-XL [Concomitant]
  7. CRESTOR [Concomitant]
  8. CLONAZEPAM [Concomitant]
     Indication: ANXIETY
  9. INSULIN [Concomitant]
     Indication: DIABETES MELLITUS

REACTIONS (3)
  - DRY THROAT [None]
  - DYSGEUSIA [None]
  - GLOSSODYNIA [None]
